FAERS Safety Report 12332822 (Version 3)
Quarter: 2016Q3

REPORT INFORMATION
  Report Type: Spontaneous
  Country: DE (occurrence: DE)
  Receive Date: 20160504
  Receipt Date: 20160705
  Transmission Date: 20161109
  Serious: Yes (Death, Hospitalization)
  Sender: FDA-Public Use
  Company Number: CA-SA-2016SA086479

PATIENT
  Age: 34 Year
  Sex: Female

DRUGS (1)
  1. ALEMTUZUMAB [Suspect]
     Active Substance: ALEMTUZUMAB
     Indication: RELAPSING-REMITTING MULTIPLE SCLEROSIS
     Dosage: TOTAL DOSE: 60 MG
     Route: 042

REACTIONS (6)
  - Autoimmune haemolytic anaemia [Fatal]
  - Jaundice [Fatal]
  - Septic shock [Unknown]
  - Disseminated intravascular coagulation [Unknown]
  - Cardio-respiratory arrest [Fatal]
  - Abdominal pain [Fatal]
